FAERS Safety Report 17077649 (Version 1)
Quarter: 2019Q4

REPORT INFORMATION
  Report Type: Report from Study
  Country: CA (occurrence: CA)
  Receive Date: 20191126
  Receipt Date: 20191126
  Transmission Date: 20200122
  Serious: Yes (Other)
  Sender: FDA-Public Use
  Company Number: CA-TEVA-2019-CA-1140131

PATIENT
  Age: 60 Year
  Sex: Male

DRUGS (3)
  1. SILIQ [Suspect]
     Active Substance: BRODALUMAB
     Dosage: 15 MILLIGRAM DAILY;
     Route: 058
  2. AMOXICILLIN. [Suspect]
     Active Substance: AMOXICILLIN
     Indication: OROPHARYNGEAL PAIN
     Dosage: 1500 MILLIGRAM DAILY;
     Route: 065
  3. SILIQ [Suspect]
     Active Substance: BRODALUMAB
     Indication: PSORIASIS
     Route: 058

REACTIONS (5)
  - Rash [Recovering/Resolving]
  - Cellulitis [Recovering/Resolving]
  - Drug hypersensitivity [Recovering/Resolving]
  - Adverse drug reaction [Recovering/Resolving]
  - Oropharyngeal pain [Recovering/Resolving]
